FAERS Safety Report 4807625-X (Version None)
Quarter: 2005Q4

REPORT INFORMATION
  Report Type: 
  Country: None (occurrence: None)
  Receive Date: 20051020
  Receipt Date: 20051011
  Transmission Date: 20060501
  Serious: Yes (Other)
  Sender: FDA-Public Use
  Company Number: 234822K05USA

PATIENT
  Age: 59 Year
  Sex: Female

DRUGS (3)
  1. REBIF [Suspect]
     Indication: MULTIPLE SCLEROSIS
     Dosage: 44 MCG, 3 IN 1 WEEKS, SUBCUTANEOUS; SEE IMAGE
     Dates: start: 20041008, end: 20050715
  2. REBIF [Suspect]
     Indication: MULTIPLE SCLEROSIS
     Dosage: 44 MCG, 3 IN 1 WEEKS, SUBCUTANEOUS; SEE IMAGE
     Dates: start: 20050801, end: 20050901
  3. REBIF [Suspect]
     Indication: MULTIPLE SCLEROSIS
     Dosage: 44 MCG, 3 IN 1 WEEKS, SUBCUTANEOUS; SEE IMAGE
     Dates: start: 20050901, end: 20051001

REACTIONS (6)
  - ARTHRALGIA [None]
  - CARDIOMEGALY [None]
  - NAUSEA [None]
  - OEDEMA [None]
  - PROGRESSIVE MULTIPLE SCLEROSIS [None]
  - VOMITING [None]
